FAERS Safety Report 4432356-8 (Version None)
Quarter: 2004Q3

REPORT INFORMATION
  Report Type: 
  Country: None (occurrence: None)
  Receive Date: 20040818
  Receipt Date: 20040811
  Transmission Date: 20050211
  Serious: Yes (Death)
  Sender: FDA-Public Use
  Company Number: 04H-163-0270356-00

PATIENT

DRUGS (2)
  1. DEXTRAN 40 10% IN DEXTROSE 5% [Suspect]
     Indication: PERIPHERAL VASCULAR DISORDER
     Dosage: 500 ML, BOLUS, INTRAVENOUS; DURING INDUCTION OF ANESTHESIA
     Route: 042
  2. HEPARIN SODIUM [Concomitant]

REACTIONS (1)
  - DEATH [None]
